FAERS Safety Report 6057125-7 (Version None)
Quarter: 2009Q1

REPORT INFORMATION
  Report Type: 
  Country: None (occurrence: None)
  Receive Date: 20090126
  Receipt Date: 20090126
  Transmission Date: 20090719
  Serious: No
  Sender: FDA-Public Use
  Company Number: None

PATIENT
  Sex: Female
  Weight: 57.6068 kg

DRUGS (1)
  1. SINGULAIR [Suspect]
     Indication: MULTIPLE ALLERGIES
     Dosage: 10MG  1 DAILY PO
     Route: 048
     Dates: start: 20081201, end: 20090126

REACTIONS (3)
  - ABDOMINAL DISTENSION [None]
  - WEIGHT INCREASED [None]
  - WEIGHT LOSS POOR [None]
